FAERS Safety Report 18805864 (Version 1)
Quarter: 2021Q1

REPORT INFORMATION
  Report Type: Spontaneous
  Country: GB (occurrence: GB)
  Receive Date: 20210128
  Receipt Date: 20210128
  Transmission Date: 20210419
  Serious: Yes (Disabling, Other)
  Sender: FDA-Public Use
  Company Number: GB-009507513-2101GBR009952

PATIENT
  Age: 61 Year
  Sex: Female
  Weight: 95.7 kg

DRUGS (5)
  1. APIXABAN [Concomitant]
     Active Substance: APIXABAN
     Indication: ATRIAL FIBRILLATION
     Dosage: ONE TO BE TAKEN TWICE A DAY
     Dates: start: 20201007, end: 20201217
  2. BISOPROLOL [Concomitant]
     Active Substance: BISOPROLOL
     Indication: ATRIAL FIBRILLATION
     Dosage: ONE TO BE TAKEN EACH DAY
     Dates: start: 20201007
  3. RAMIPRIL. [Concomitant]
     Active Substance: RAMIPRIL
     Dosage: ONE TO BE TAKEN EACH NIGHT
     Dates: start: 20210105
  4. EPCLUSA [Concomitant]
     Active Substance: SOFOSBUVIR\VELPATASVIR
     Indication: HEPATITIS C
     Dates: start: 2018
  5. RIBAVIRIN. [Suspect]
     Active Substance: RIBAVIRIN
     Indication: HEPATITIS C
     Dates: start: 20180709, end: 20181001

REACTIONS (4)
  - Cough [Unknown]
  - Left ventricular dysfunction [Unknown]
  - Atrial fibrillation [Unknown]
  - Cardiac failure [Not Recovered/Not Resolved]

NARRATIVE: CASE EVENT DATE: 2019
